FAERS Safety Report 10067706 (Version 1)
Quarter: 2014Q2

REPORT INFORMATION
  Report Type: Spontaneous
  Country: US (occurrence: None)
  Receive Date: 20140407
  Receipt Date: 20140407
  Transmission Date: 20141212
  Serious: Yes (Hospitalization)
  Sender: FDA-Public Use
  Company Number: UTC-046668

PATIENT
  Age: 4 Year
  Sex: Female
  Weight: 13.15 kg

DRUGS (3)
  1. REMODULIN (1 MILLIGRAM/MILLILITERS, INJECTION FOR INFUSION (TREPROSTINIL SODIUM) [Suspect]
     Indication: PULMONARY ARTERIAL HYPERTENSION
     Dates: start: 20110919
  2. TRACLEER (BOSENTAN) [Concomitant]
  3. ADCIRCA (TADALAFIL) [Concomitant]

REACTIONS (2)
  - Respiratory syncytial virus infection [None]
  - Medical device complication [None]
